FAERS Safety Report 22164857 (Version 6)
Quarter: 2023Q4

REPORT INFORMATION
  Report Type: Report from Study
  Country: US (occurrence: US)
  Receive Date: 20230403
  Receipt Date: 20231218
  Transmission Date: 20240110
  Serious: Yes (Other)
  Sender: FDA-Public Use
  Company Number: US-002147023-NVSC2023US073093

PATIENT
  Age: 46 Year
  Sex: Female

DRUGS (1)
  1. KESIMPTA [Suspect]
     Active Substance: OFATUMUMAB
     Indication: Multiple sclerosis
     Dosage: UNK, QW
     Route: 065
     Dates: start: 20230325

REACTIONS (11)
  - Multiple sclerosis relapse [Unknown]
  - Incontinence [Unknown]
  - Malaise [Unknown]
  - Gait disturbance [Not Recovered/Not Resolved]
  - Balance disorder [Not Recovered/Not Resolved]
  - Exostosis [Unknown]
  - Arthropathy [Unknown]
  - Nausea [Unknown]
  - Pyrexia [Unknown]
  - Vomiting [Unknown]
  - Asthenia [Not Recovered/Not Resolved]

NARRATIVE: CASE EVENT DATE: 20230325
